FAERS Safety Report 4370712-7 (Version None)
Quarter: 2004Q2

REPORT INFORMATION
  Report Type: 
  Country: None (occurrence: None)
  Receive Date: 20040604
  Receipt Date: 20040331
  Transmission Date: 20050107
  Serious: Yes (Death)
  Sender: FDA-Public Use
  Company Number: 200410707DE

PATIENT
  Sex: Male

DRUGS (4)
  1. ARAVA [Suspect]
     Dates: start: 20030101, end: 20030101
  2. METHOTREXATE [Suspect]
     Dates: end: 20021001
  3. CELECOXIB [Concomitant]
  4. PREDNISOLONE [Concomitant]

REACTIONS (6)
  - COUGH [None]
  - DYSPNOEA [None]
  - PNEUMONITIS [None]
  - PULMONARY FIBROSIS [None]
  - PYREXIA [None]
  - TACHYPNOEA [None]
